FAERS Safety Report 7552367-3 (Version None)
Quarter: 2011Q2

REPORT INFORMATION
  Report Type: 
  Country: None (occurrence: None)
  Receive Date: 20110616
  Receipt Date: 20080930
  Transmission Date: 20111010
  Serious: Yes (Life-Threatening, Other)
  Sender: FDA-Public Use
  Company Number: PHHY2008US23148

PATIENT

DRUGS (1)
  1. CLOZAPINE [Suspect]

REACTIONS (2)
  - LYMPHOMA [None]
  - SUICIDAL BEHAVIOUR [None]
